FAERS Safety Report 5595922-2 (Version None)
Quarter: 2008Q1

REPORT INFORMATION
  Report Type: 
  Country: None (occurrence: None)
  Receive Date: 20080118
  Receipt Date: 20080114
  Transmission Date: 20080703
  Serious: Yes (Death)
  Sender: FDA-Public Use
  Company Number: US-ASTRAZENECA-2007UW26683

PATIENT
  Age: 35 Year
  Sex: Female
  Weight: 53.6 kg

DRUGS (7)
  1. SEROQUEL [Suspect]
     Indication: BIPOLAR I DISORDER
     Route: 048
     Dates: start: 20020101, end: 20071029
  2. GEODON [Suspect]
     Route: 048
  3. WELLBUTRIN XL [Suspect]
  4. LAMICTAL [Suspect]
     Indication: BIPOLAR DISORDER
     Route: 048
  5. ABILIFY [Suspect]
     Route: 048
  6. CYMBALTA [Concomitant]
  7. PROVIGIL [Concomitant]

REACTIONS (4)
  - CEREBROVASCULAR INSUFFICIENCY [None]
  - DRUG TOXICITY [None]
  - GRAND MAL CONVULSION [None]
  - RESPIRATORY ARREST [None]
